FAERS Safety Report 8358097-2 (Version None)
Quarter: 2012Q2

REPORT INFORMATION
  Report Type: 
  Country: None (occurrence: None)
  Receive Date: 20120514
  Receipt Date: 20120502
  Transmission Date: 20120825
  Serious: Yes (Other)
  Sender: FDA-Public Use
  Company Number: US-ROCHE-1036685

PATIENT
  Sex: Female
  Weight: 74.456 kg

DRUGS (3)
  1. MOBIC [Concomitant]
     Route: 048
  2. XANAX [Concomitant]
     Indication: ANXIETY
     Route: 048
  3. ZELBORAF [Suspect]
     Indication: MALIGNANT MELANOMA
     Route: 048
     Dates: start: 20110720, end: 20120104

REACTIONS (1)
  - DISEASE PROGRESSION [None]
